FAERS Safety Report 11618566 (Version 1)
Quarter: 2015Q4

REPORT INFORMATION
  Report Type: Spontaneous
  Country: US (occurrence: US)
  Receive Date: 20151012
  Receipt Date: 20151012
  Transmission Date: 20160304
  Serious: Yes (Death)
  Sender: FDA-Public Use
  Company Number: US-ROCHE-1644550

PATIENT
  Age: 78 Year
  Sex: Male

DRUGS (1)
  1. ERIVEDGE [Suspect]
     Active Substance: VISMODEGIB
     Indication: NEOPLASM SKIN
     Route: 048
     Dates: start: 20140801, end: 20150929

REACTIONS (1)
  - Death [Fatal]

NARRATIVE: CASE EVENT DATE: 20151007
